FAERS Safety Report 8329195-4 (Version None)
Quarter: 2012Q2

REPORT INFORMATION
  Report Type: 
  Country: None (occurrence: None)
  Receive Date: 20120502
  Receipt Date: 20111101
  Transmission Date: 20120825
  Serious: No
  Sender: FDA-Public Use
  Company Number: US-ASTRAZENECA-2011SE65987

PATIENT
  Age: 62 Year
  Sex: Female

DRUGS (4)
  1. VITAMIN D [Concomitant]
  2. FASLODEX [Suspect]
     Indication: BREAST CANCER METASTATIC
     Route: 030
  3. VIT E [Concomitant]
  4. CALCIUM [Concomitant]

REACTIONS (3)
  - RASH [None]
  - RENAL IMPAIRMENT [None]
  - PRURITUS [None]
